FAERS Safety Report 4896351-7 (Version None)
Quarter: 2006Q1

REPORT INFORMATION
  Report Type: 
  Country: None (occurrence: None)
  Receive Date: 20060126
  Receipt Date: 20060110
  Transmission Date: 20060701
  Serious: Yes (Death)
  Sender: FDA-Public Use
  Company Number: 200601IM000082

PATIENT
  Age: 6 Year
  Sex: Female

DRUGS (6)
  1. INTERFERON GAMMA-1B [Suspect]
     Indication: CARDIAC GRANULOMA
     Dosage: SUBCUTANEOUS
     Route: 058
  2. INTERFERON GAMMA-1B [Suspect]
     Indication: CHRONIC GRANULOMATOUS DISEASE
     Dosage: SUBCUTANEOUS
     Route: 058
  3. CIPROFLOXACIN [Concomitant]
  4. AMPHOTERICIN B [Concomitant]
  5. TRANSFER FACTOR [Concomitant]
  6. STEROIDS [Concomitant]

REACTIONS (16)
  - ACTIVATED PARTIAL THROMBOPLASTIN TIME PROLONGED [None]
  - ACUTE PULMONARY OEDEMA [None]
  - ASCITES [None]
  - ATRIOVENTRICULAR BLOCK [None]
  - BRAIN OEDEMA [None]
  - CARDIAC MURMUR [None]
  - HAEMORRHAGE INTRACRANIAL [None]
  - HEPATOMEGALY [None]
  - MALNUTRITION [None]
  - PNEUMONIA [None]
  - PROTHROMBIN TIME PROLONGED [None]
  - RESPIRATORY FAILURE [None]
  - SPLENOMEGALY [None]
  - SUBCUTANEOUS ABSCESS [None]
  - THROMBOCYTOPENIA [None]
  - TRICUSPID VALVE INCOMPETENCE [None]
